FAERS Safety Report 17629140 (Version 2)
Quarter: 2020Q2

REPORT INFORMATION
  Report Type: Spontaneous
  Country: US (occurrence: US)
  Receive Date: 20200406
  Receipt Date: 20200407
  Transmission Date: 20200713
  Serious: Yes (Other)
  Sender: FDA-Public Use
  Company Number: US-SA-2020SA084240

PATIENT
  Sex: Male

DRUGS (1)
  1. ZANTAC [Suspect]
     Active Substance: RANITIDINE HYDROCHLORIDE
     Dosage: FOUR TIMES PER WEEK
     Dates: start: 1996, end: 2019

REACTIONS (3)
  - Anxiety [Unknown]
  - Emotional distress [Unknown]
  - Bladder cancer [Unknown]

NARRATIVE: CASE EVENT DATE: 2018
